FAERS Safety Report 23852300 (Version 2)
Quarter: 2024Q3

REPORT INFORMATION
  Report Type: Spontaneous
  Country: SA (occurrence: SA)
  Receive Date: 20240514
  Receipt Date: 20240702
  Transmission Date: 20241017
  Serious: Yes (Hospitalization, Other)
  Sender: ACCORD
  Company Number: SA-MLMSERVICE-20240425-PI038218-00218-1

PATIENT
  Age: 50 Year
  Sex: Male

DRUGS (3)
  1. METHOTREXATE [Suspect]
     Active Substance: METHOTREXATE
     Indication: Rheumatoid arthritis
     Dosage: TWO DOSES
     Route: 048
     Dates: start: 202305, end: 202307
  2. FOLIC ACID [Concomitant]
     Active Substance: FOLIC ACID
     Indication: Rheumatoid arthritis
     Dates: start: 202305
  3. ACETAMINOPHEN [Concomitant]
     Active Substance: ACETAMINOPHEN
     Indication: Arthralgia

REACTIONS (7)
  - Mouth ulceration [Unknown]
  - Rash pruritic [Unknown]
  - Nephropathy toxic [Recovering/Resolving]
  - Rash maculo-papular [Unknown]
  - Metabolic acidosis [Unknown]
  - Renal impairment [Recovering/Resolving]
  - Fatigue [Unknown]

NARRATIVE: CASE EVENT DATE: 20230101
